FAERS Safety Report 5464634-8 (Version None)
Quarter: 2007Q3

REPORT INFORMATION
  Report Type: 
  Country: None (occurrence: None)
  Receive Date: 20070921
  Receipt Date: 20070914
  Transmission Date: 20080115
  Serious: Yes (Hospitalization)
  Sender: FDA-Public Use
  Company Number: NO-ABBOTT-07P-122-0417114-00

PATIENT
  Age: 39 Year
  Sex: Male

DRUGS (3)
  1. KALETRA [Suspect]
     Indication: HIV INFECTION
     Route: 048
     Dates: start: 20070301
  2. ABACAVIR SULFATE [Suspect]
     Indication: HIV INFECTION
     Dates: start: 20070301
  3. TENOFOVIR DISOPROXIL FUMARATE [Suspect]
     Indication: HIV INFECTION
     Dates: start: 20070301

REACTIONS (3)
  - ATYPICAL MYCOBACTERIAL INFECTION [None]
  - HAEMOGLOBIN DECREASED [None]
  - HAEMOLYSIS [None]
